FAERS Safety Report 9839590 (Version 1)
Quarter: 2014Q1

REPORT INFORMATION
  Report Type: Spontaneous
  Country: BR (occurrence: BR)
  Receive Date: 20140124
  Receipt Date: 20140124
  Transmission Date: 20141002
  Serious: Yes (Hospitalization)
  Sender: FDA-Public Use
  Company Number: BR-ASTRAZENECA-2014SE04251

PATIENT
  Age: 881 Month
  Sex: Female
  Weight: 62 kg

DRUGS (5)
  1. NEXIUM [Suspect]
     Indication: GASTRIC DISORDER
     Route: 048
     Dates: start: 2012
  2. NEXIUM [Suspect]
     Indication: GASTRITIS EROSIVE
     Route: 048
     Dates: start: 2012
  3. TORLOS [Concomitant]
     Indication: HYPERTENSION
     Route: 048
  4. UNKNOWN [Concomitant]
     Indication: CONSTIPATION
     Dosage: ONCE A WEEK
     Route: 048
  5. LEXOTAN [Concomitant]
     Indication: SEDATIVE THERAPY
     Dosage: 1/2 TABLET, EVERY MORNING
     Route: 048

REACTIONS (1)
  - Cholelithiasis [Recovered/Resolved]
